FAERS Safety Report 4655357-3 (Version None)
Quarter: 2005Q2

REPORT INFORMATION
  Report Type: 
  Country: None (occurrence: None)
  Receive Date: 20050505
  Receipt Date: 20050419
  Transmission Date: 20051028
  Serious: Yes (Hospitalization)
  Sender: FDA-Public Use
  Company Number: USA050496061

PATIENT
  Age: 35 Year
  Sex: Female

DRUGS (7)
  1. CYMBALTA [Suspect]
     Indication: DEPRESSION
     Dosage: 60 MG/EVERY DAY
     Dates: start: 20050101
  2. NEXIUM [Concomitant]
  3. INDERAL LA [Concomitant]
  4. ESTRATEST H.S. [Concomitant]
  5. TRICOR [Concomitant]
  6. DITROPAN XL [Concomitant]
  7. SEROQUEL [Concomitant]

REACTIONS (3)
  - FEAR [None]
  - THINKING ABNORMAL [None]
  - TREATMENT NONCOMPLIANCE [None]
